FAERS Safety Report 11655590 (Version 1)
Quarter: 2015Q4

REPORT INFORMATION
  Report Type: Spontaneous
  Country: CN (occurrence: CN)
  Receive Date: 20151023
  Receipt Date: 20151023
  Transmission Date: 20160304
  Serious: Yes (Hospitalization)
  Sender: FDA-Public Use
  Company Number: CN-BAYER-2015-444755

PATIENT
  Age: 32 Year
  Sex: Male
  Weight: 75 kg

DRUGS (3)
  1. OXYGEN. [Concomitant]
     Active Substance: OXYGEN
     Indication: COUGH
     Dosage: 2 DF, TID
     Route: 048
     Dates: start: 20150401, end: 20150407
  2. POTASSIUM GUAIACOLSULFONATE [Concomitant]
     Active Substance: POTASSIUM GUAIACOLSULFONATE
     Indication: PRODUCTIVE COUGH
     Dosage: 10 ML, TID
     Route: 048
     Dates: start: 20150401, end: 20150403
  3. AVELOX [Suspect]
     Active Substance: MOXIFLOXACIN HYDROCHLORIDE
     Indication: BRONCHITIS
     Dosage: 0.4 G, QD
     Route: 048
     Dates: start: 20150401, end: 20150401

REACTIONS (4)
  - Dermatitis bullous [Recovering/Resolving]
  - Lip pain [Recovering/Resolving]
  - Hyperhidrosis [Recovering/Resolving]
  - Skin erosion [Recovering/Resolving]

NARRATIVE: CASE EVENT DATE: 20150401
